FAERS Safety Report 9464354 (Version 2)
Quarter: 2014Q1

REPORT INFORMATION
  Report Type: Report from Study
  Country: US (occurrence: US)
  Receive Date: 20130819
  Receipt Date: 20140124
  Transmission Date: 20141002
  Serious: Yes (Hospitalization)
  Sender: FDA-Public Use
  Company Number: US-ROCHE-1258272

PATIENT
  Age: 61 Year
  Sex: Male
  Weight: 91 kg

DRUGS (18)
  1. RANIBIZUMAB [Suspect]
     Indication: DIABETIC RETINAL OEDEMA
     Dosage: THERAPY END FOR OD : 18/NOV/2013 AND THERAPY END FOR OS : 13/JAN/2014
     Route: 050
     Dates: start: 20130606
  2. ASPIRIN [Concomitant]
     Route: 048
     Dates: start: 2011, end: 201308
  3. ASPIRIN [Concomitant]
     Route: 065
  4. PANTOPRAZOLE [Concomitant]
     Indication: GASTROOESOPHAGEAL REFLUX DISEASE
     Route: 048
     Dates: start: 20130505
  5. OXYCODONE [Concomitant]
     Indication: PAIN
     Route: 048
     Dates: end: 2009
  6. CARVEDILOL [Concomitant]
     Indication: HEART RATE IRREGULAR
     Route: 048
     Dates: end: 20130426
  7. CARVEDILOL [Concomitant]
     Route: 048
  8. CARVEDILOL [Concomitant]
     Route: 065
     Dates: start: 20131104
  9. LYRICA [Concomitant]
     Indication: NEURALGIA
     Route: 048
     Dates: start: 20130419, end: 20130629
  10. LYRICA [Concomitant]
     Route: 065
     Dates: start: 20131104
  11. VITAMIN D3 [Concomitant]
     Dosage: 50000
     Route: 048
     Dates: end: 2013
  12. VITAMIN D3 [Concomitant]
     Dosage: 1 CAPSULE
     Route: 048
  13. METOLAZONE [Concomitant]
     Indication: HYPERTENSION
     Route: 048
     Dates: end: 2013
  14. FUROSEMIDE [Concomitant]
     Route: 048
     Dates: start: 2012, end: 20130729
  15. FUROSEMIDE [Concomitant]
     Route: 065
     Dates: start: 20131104
  16. CLOPIDOGREL [Concomitant]
     Indication: ANTICOAGULANT THERAPY
     Route: 048
     Dates: end: 2011
  17. NITROSTAT [Concomitant]
     Indication: MYOCARDIAL INFARCTION
     Route: 048
     Dates: start: 2011
  18. LEVEMIR [Concomitant]
     Indication: TYPE 2 DIABETES MELLITUS
     Dosage: 11 UNITS
     Route: 065
     Dates: start: 1991, end: 20131223

REACTIONS (2)
  - Renal failure acute [Not Recovered/Not Resolved]
  - Hypoglycaemia [Recovered/Resolved]
